FAERS Safety Report 9442502 (Version 2)
Quarter: 2013Q3

REPORT INFORMATION
  Report Type: Spontaneous
  Country: JP (occurrence: JP)
  Receive Date: 20130806
  Receipt Date: 20130814
  Transmission Date: 20140515
  Serious: Yes (Other)
  Sender: FDA-Public Use
  Company Number: JP-PFIZER INC-2013227029

PATIENT
  Age: 41 Year
  Sex: Male

DRUGS (4)
  1. AMIODARONE HYDROCHLORIDE [Suspect]
     Indication: VENTRICULAR TACHYCARDIA
     Dosage: UNK
     Route: 065
  2. AMIODARONE HYDROCHLORIDE [Suspect]
     Indication: ATRIAL FIBRILLATION
  3. WARFARIN [Concomitant]
     Indication: VENTRICULAR TACHYCARDIA
  4. WARFARIN [Concomitant]
     Indication: ATRIAL FIBRILLATION

REACTIONS (4)
  - Thyroiditis [Recovering/Resolving]
  - Thyrotoxic crisis [Recovering/Resolving]
  - Jaundice [Recovering/Resolving]
  - Delirium [Recovering/Resolving]
